FAERS Safety Report 9457335 (Version 1)
Quarter: 2013Q3

REPORT INFORMATION
  Report Type: Spontaneous
  Country: RO (occurrence: None)
  Receive Date: 20130812
  Receipt Date: 20130812
  Transmission Date: 20140515
  Serious: Yes (Other)
  Sender: FDA-Public Use
  Company Number: 2013P1016454

PATIENT
  Age: 34 Month
  Sex: Male

DRUGS (1)
  1. ALBENDAZOLE [Suspect]
     Indication: GIARDIASIS
     Dates: start: 20130722, end: 20130722

REACTIONS (3)
  - Convulsion [None]
  - Pallor [None]
  - Abdominal pain [None]
